FAERS Safety Report 15478597 (Version 4)
Quarter: 2019Q1

REPORT INFORMATION
  Report Type: Report from Study
  Country: ES (occurrence: ES)
  Receive Date: 20181009
  Receipt Date: 20190131
  Transmission Date: 20190417
  Serious: Yes (Hospitalization)
  Sender: FDA-Public Use
  Company Number: ES-EMD SERONO-E2B_90060758

PATIENT
  Age: 57 Year
  Sex: Male
  Weight: 92 kg

DRUGS (8)
  1. CALCIPOTRIOL, BETAMETHASONE [Concomitant]
     Indication: HYPERKERATOSIS
     Dosage: UNK
     Dates: start: 20180828
  2. PARACETAMOL [Concomitant]
     Active Substance: ACETAMINOPHEN
     Indication: PAIN
     Dosage: UNK
     Dates: start: 20171213, end: 20181001
  3. AVELUMAB [Suspect]
     Active Substance: AVELUMAB
     Indication: TRANSITIONAL CELL CARCINOMA
     Dosage: 21 DAYS
     Route: 042
     Dates: start: 20180516, end: 20180919
  4. LYRICA [Concomitant]
     Active Substance: PREGABALIN
     Indication: PAIN
     Dosage: UNK
     Dates: start: 201710
  5. TIRODRIL [Concomitant]
     Active Substance: METHIMAZOLE
     Indication: HYPERTHYROIDISM
     Dosage: UNK
     Dates: start: 20180727, end: 20180921
  6. HYDROCORTISONE. [Concomitant]
     Active Substance: HYDROCORTISONE
     Indication: ERYTHEMA
     Dosage: UNK
     Dates: start: 20180917
  7. DUROGESIC MATRIX [Concomitant]
     Active Substance: FENTANYL
     Indication: PAIN
     Dosage: 25 UG/H, DAILY
     Dates: start: 20180614
  8. BRIMICA GENUAIR [Concomitant]
     Active Substance: ACLIDINIUM BROMIDE\FORMOTEROL FUMARATE
     Indication: BRONCHITIS CHRONIC
     Dosage: 340/12 MCG, DAILY
     Route: 055
     Dates: start: 20170730

REACTIONS (1)
  - Hepatotoxicity [Recovered/Resolved]

NARRATIVE: CASE EVENT DATE: 20180919
